FAERS Safety Report 8116928-5 (Version None)
Quarter: 2012Q1

REPORT INFORMATION
  Report Type: 
  Country: None (occurrence: None)
  Receive Date: 20120206
  Receipt Date: 20120202
  Transmission Date: 20120608
  Serious: Yes (Other)
  Sender: FDA-Public Use
  Company Number: US-BAYER-2012-011241

PATIENT
  Age: 56 Year
  Sex: Male
  Weight: 70.295 kg

DRUGS (1)
  1. ALEVE (CAPLET) [Suspect]
     Dosage: BOTTLE COUNT 50
     Route: 048
     Dates: start: 20120202, end: 20120202

REACTIONS (5)
  - SWOLLEN TONGUE [None]
  - SKIN TIGHTNESS [None]
  - HYPERSENSITIVITY [None]
  - OEDEMA PERIPHERAL [None]
  - FLUSHING [None]
